FAERS Safety Report 5925551-X (Version None)
Quarter: 2008Q4

REPORT INFORMATION
  Report Type: 
  Country: None (occurrence: None)
  Receive Date: 20081021
  Receipt Date: 20081015
  Transmission Date: 20090506
  Serious: Yes (Hospitalization)
  Sender: FDA-Public Use
  Company Number: PHHY2008JP25025

PATIENT
  Sex: Male

DRUGS (6)
  1. DIOVAN [Suspect]
     Indication: HYPERTENSION
     Dosage: 80 MG, QD
     Route: 048
     Dates: start: 20070906, end: 20071227
  2. CALBLOCK [Concomitant]
     Indication: HYPERTENSION
     Dosage: 16 MG
     Route: 048
     Dates: start: 20060921, end: 20071227
  3. ARTIST [Concomitant]
     Indication: HYPERTENSION
     Dosage: 10 MG
     Route: 048
     Dates: start: 20060907, end: 20071227
  4. ASPIRIN [Concomitant]
     Dosage: 100 MG
     Route: 048
     Dates: start: 20060907, end: 20071227
  5. FAMOTIDINE [Concomitant]
     Dosage: 10 MG
     Route: 048
     Dates: start: 20070517, end: 20071227
  6. WARFARIN SODIUM [Concomitant]
     Dosage: 3 MG
     Route: 048
     Dates: start: 20060907, end: 20071227

REACTIONS (1)
  - CEREBRAL HAEMORRHAGE [None]
